FAERS Safety Report 21412101 (Version 1)
Quarter: 2022Q4

REPORT INFORMATION
  Report Type: Spontaneous
  Country: US (occurrence: None)
  Receive Date: 20221004
  Receipt Date: 20221004
  Transmission Date: 20230113
  Serious: Yes (Hospitalization, Disabling)
  Sender: FDA-Public Use
  Company Number: None

PATIENT
  Age: 67 Year
  Sex: Female

DRUGS (1)
  1. VERZENIO [Suspect]
     Active Substance: ABEMACICLIB
     Indication: Neoplasm malignant
     Dates: start: 20220825, end: 20220930

REACTIONS (3)
  - Diarrhoea [None]
  - Decreased appetite [None]
  - Therapy change [None]

NARRATIVE: CASE EVENT DATE: 20220930
